FAERS Safety Report 9096869 (Version 2)
Quarter: 2013Q1

REPORT INFORMATION
  Report Type: Spontaneous
  Country: US (occurrence: None)
  Receive Date: 20130124
  Receipt Date: 20130131
  Transmission Date: 20140127
  Serious: Yes (Hospitalization)
  Sender: FDA-Public Use
  Company Number: ABR_00727_2012

PATIENT
  Age: 53 Year
  Sex: Female

DRUGS (3)
  1. ERYTHROMYCIN [Suspect]
     Indication: SINUSITIS
     Dates: start: 2012, end: 2012
  2. PREDNISONE [Suspect]
     Indication: PRURITUS
     Route: 042
     Dates: start: 2012
  3. PREDNISONE [Suspect]
     Indication: URTICARIA
     Route: 042
     Dates: start: 2012

REACTIONS (7)
  - Urticaria [None]
  - Pruritus [None]
  - Haematoma [None]
  - Coagulopathy [None]
  - Haemorrhage [None]
  - Bone disorder [None]
  - Procedural site reaction [None]
